FAERS Safety Report 7991893-X (Version None)
Quarter: 2011Q4

REPORT INFORMATION
  Report Type: 
  Country: None (occurrence: None)
  Receive Date: 20111219
  Receipt Date: 20111215
  Transmission Date: 20120403
  Serious: Yes (Death, Life-Threatening, Other)
  Sender: FDA-Public Use
  Company Number: PHHY2011JP82290

PATIENT
  Age: 78 Year
  Sex: Female

DRUGS (3)
  1. AMINOLEBAN EN [Concomitant]
     Dosage: 150 G, UNK
  2. NEORAL [Suspect]
     Indication: PSORIASIS
     Dosage: 200 MG
     Route: 048
     Dates: start: 20110831, end: 20110914
  3. AMINOLEBAN EN [Concomitant]
     Indication: HEPATIC FAILURE
     Dosage: 100 G, UNK

REACTIONS (12)
  - NAUSEA [None]
  - ASPARTATE AMINOTRANSFERASE INCREASED [None]
  - DYSPNOEA [None]
  - LIVER DISORDER [None]
  - HEPATIC FAILURE [None]
  - FLUSHING [None]
  - IMMUNOSUPPRESSANT DRUG LEVEL INCREASED [None]
  - PNEUMONIA ASPIRATION [None]
  - DECREASED APPETITE [None]
  - CONSTIPATION [None]
  - CHEST PAIN [None]
  - ASCITES [None]
